FAERS Safety Report 10215147 (Version 2)
Quarter: 2014Q2

REPORT INFORMATION
  Report Type: Spontaneous
  Country: US (occurrence: US)
  Receive Date: 20140603
  Receipt Date: 20140630
  Transmission Date: 20141212
  Serious: Yes (Other)
  Sender: FDA-Public Use
  Company Number: US-GILEAD-2014-0103845

PATIENT
  Sex: Female

DRUGS (5)
  1. SOVALDI [Suspect]
     Indication: HEPATITIS C
     Dosage: 400 MG, QD
     Route: 048
     Dates: end: 20140527
  2. SOVALDI [Suspect]
     Dosage: 400 MG, QD
     Route: 048
     Dates: start: 20140529, end: 20140612
  3. PEGINTERFERON ALFA [Suspect]
     Indication: HEPATITIS C
     Dosage: UNK
     Route: 065
     Dates: end: 20140527
  4. RIBAVIRIN [Suspect]
     Indication: HEPATITIS C
     Dosage: UNK
     Route: 065
     Dates: end: 20140527
  5. RIBAVIRIN [Suspect]
     Dosage: LOWER DOSE
     Route: 065
     Dates: start: 20140529, end: 20140612

REACTIONS (4)
  - Alanine aminotransferase increased [Unknown]
  - Aspartate aminotransferase increased [Unknown]
  - Stomatitis [Recovered/Resolved]
  - Rash [Recovered/Resolved]
